FAERS Safety Report 9857151 (Version 1)
Quarter: 2014Q1

REPORT INFORMATION
  Report Type: Spontaneous
  Country: IT (occurrence: None)
  Receive Date: 20140128
  Receipt Date: 20140128
  Transmission Date: 20141002
  Serious: Yes (Death, Hospitalization)
  Sender: FDA-Public Use
  Company Number: IPC201401-000034

PATIENT
  Age: 63 Year
  Sex: Male

DRUGS (1)
  1. METFORMIN HYDROCHLORIDE (METFORMIN HYDROCHLORIDE) (METFORMIN HYDROCHLORIDE) [Suspect]

REACTIONS (6)
  - Toxicity to various agents [None]
  - Metabolic acidosis [None]
  - Hyperlactacidaemia [None]
  - Hypoglycaemia [None]
  - Hypotension [None]
  - Renal failure acute [None]
